FAERS Safety Report 8283888 (Version 44)
Quarter: 2018Q1

REPORT INFORMATION
  Report Type: Report from Study
  Country: CA (occurrence: CA)
  Receive Date: 20111212
  Receipt Date: 20180109
  Transmission Date: 20180509
  Serious: Yes (Hospitalization, Other)
  Sender: FDA-Public Use
  Company Number: PHHY2011CA64556

PATIENT
  Age: 74 Year
  Sex: Female

DRUGS (13)
  1. RESOTRAN [Concomitant]
     Active Substance: PRUCALOPRIDE SUCCINATE
     Indication: PRODUCT USED FOR UNKNOWN INDICATION
     Route: 065
  2. SANDOSTATIN [Suspect]
     Active Substance: OCTREOTIDE ACETATE
     Indication: NEUROENDOCRINE TUMOUR
     Dosage: UNK UNK, BID
     Route: 058
     Dates: start: 20110711, end: 20110724
  3. ESCITALOPRAM [Concomitant]
     Active Substance: ESCITALOPRAM OXALATE
     Indication: PRODUCT USED FOR UNKNOWN INDICATION
     Route: 065
  4. CALCIUM CARBONATE. [Concomitant]
     Active Substance: CALCIUM CARBONATE
     Indication: PRODUCT USED FOR UNKNOWN INDICATION
     Route: 065
  5. GABAPENTIN. [Concomitant]
     Active Substance: GABAPENTIN
     Indication: PRODUCT USED FOR UNKNOWN INDICATION
     Route: 065
  6. SANDOSTATIN LAR DEPOT [Suspect]
     Active Substance: OCTREOTIDE ACETATE
     Indication: NEUROENDOCRINE TUMOUR
     Dosage: 20 MG, QMO (ONCE A MONTH)
     Route: 030
     Dates: start: 20110726
  7. SANDOSTATIN LAR DEPOT [Suspect]
     Active Substance: OCTREOTIDE ACETATE
     Dosage: 30 MG, QMO
     Route: 030
  8. SANDOSTATIN LAR DEPOT [Suspect]
     Active Substance: OCTREOTIDE ACETATE
     Dosage: 20 MG, QMO
     Route: 030
     Dates: start: 20121121
  9. VITAMIN D [Concomitant]
     Active Substance: CHOLECALCIFEROL
     Indication: PRODUCT USED FOR UNKNOWN INDICATION
     Route: 065
  10. OLANZAPINE. [Concomitant]
     Active Substance: OLANZAPINE
     Indication: PRODUCT USED FOR UNKNOWN INDICATION
     Route: 065
  11. PANTOPRAZOLE [Concomitant]
     Active Substance: PANTOPRAZOLE
     Indication: PRODUCT USED FOR UNKNOWN INDICATION
     Route: 065
  12. ACETAMINOPHEN. [Concomitant]
     Active Substance: ACETAMINOPHEN
     Indication: PRODUCT USED FOR UNKNOWN INDICATION
     Route: 065
  13. HYDROMORPHONE [Concomitant]
     Active Substance: HYDROMORPHONE
     Indication: PRODUCT USED FOR UNKNOWN INDICATION
     Route: 065

REACTIONS (47)
  - Pneumonia [Unknown]
  - Abdominal discomfort [Recovering/Resolving]
  - Wrist fracture [Unknown]
  - Unresponsive to stimuli [Unknown]
  - Malignant neoplasm progression [Unknown]
  - Psychiatric symptom [Unknown]
  - Depression [Unknown]
  - Anger [Unknown]
  - Fall [Unknown]
  - Depression [Recovered/Resolved]
  - Blood pressure increased [Unknown]
  - Blood pressure systolic increased [Unknown]
  - Feeling jittery [Unknown]
  - Pain in extremity [Unknown]
  - Screaming [Unknown]
  - Nausea [Recovered/Resolved]
  - Mental disorder [Unknown]
  - Rib fracture [Unknown]
  - Suicidal ideation [Unknown]
  - Vasculitis [Unknown]
  - Hypoacusis [Unknown]
  - Headache [Not Recovered/Not Resolved]
  - Rash [Unknown]
  - Suicide attempt [Unknown]
  - Cerebrovascular accident [Unknown]
  - Depressed mood [Not Recovered/Not Resolved]
  - Tremor [Recovered/Resolved]
  - Gait disturbance [Unknown]
  - Nervousness [Recovered/Resolved]
  - Wound [Unknown]
  - Contusion [Unknown]
  - Diarrhoea [Unknown]
  - Bronchitis [Recovered/Resolved]
  - Peripheral swelling [Unknown]
  - Cough [Unknown]
  - Anxiety [Unknown]
  - Malaise [Unknown]
  - Head banging [Not Recovered/Not Resolved]
  - Pollakiuria [Recovered/Resolved]
  - Nervousness [Unknown]
  - Crying [Unknown]
  - Inappropriate schedule of drug administration [Unknown]
  - Fatigue [Unknown]
  - Productive cough [Recovered/Resolved]
  - Muscular weakness [Unknown]
  - Nasopharyngitis [Unknown]
  - Emotional distress [Unknown]

NARRATIVE: CASE EVENT DATE: 20121214
